FAERS Safety Report 11870368 (Version 1)
Quarter: 2015Q4

REPORT INFORMATION
  Report Type: Spontaneous
  Country: US (occurrence: US)
  Receive Date: 20151228
  Receipt Date: 20151228
  Transmission Date: 20160305
  Serious: No
  Sender: FDA-Public Use
  Company Number: US-BAYER-2015-495835

PATIENT
  Age: 65 Year
  Sex: Female
  Weight: 102.49 kg

DRUGS (1)
  1. MIRALAX [Suspect]
     Active Substance: POLYETHYLENE GLYCOL 3350
     Indication: CONSTIPATION
     Dosage: 1 DF, QD
     Route: 048
     Dates: start: 201509, end: 20151222

REACTIONS (4)
  - Drug ineffective [None]
  - Flatulence [None]
  - Abdominal distension [None]
  - Product use issue [None]

NARRATIVE: CASE EVENT DATE: 2015
